FAERS Safety Report 25979297 (Version 3)
Quarter: 2025Q4

REPORT INFORMATION
  Report Type: Spontaneous
  Country: TH (occurrence: TH)
  Receive Date: 20251030
  Receipt Date: 20251118
  Transmission Date: 20260118
  Serious: Yes (Death, Life-Threatening, Other)
  Sender: BRACCO
  Company Number: TH-BRACCO-2025TH07455

PATIENT
  Age: 72 Year
  Sex: Female

DRUGS (1)
  1. IOPAMIRO [Suspect]
     Active Substance: IOPAMIDOL
     Indication: Computerised tomogram abdomen
     Dosage: UNK, SINGLE
     Route: 042
     Dates: start: 20251023, end: 20251023

REACTIONS (7)
  - Pulseless electrical activity [Fatal]
  - Lip swelling [Fatal]
  - Swollen tongue [Fatal]
  - Blood pressure increased [Unknown]
  - Nausea [Unknown]
  - Vomiting [Unknown]
  - Dyspnoea [Unknown]

NARRATIVE: CASE EVENT DATE: 20251023
